FAERS Safety Report 11283354 (Version 3)
Quarter: 2015Q3

REPORT INFORMATION
  Report Type: Spontaneous
  Country: AR (occurrence: AR)
  Receive Date: 20150720
  Receipt Date: 20150810
  Transmission Date: 20151125
  Serious: Yes (Hospitalization)
  Sender: FDA-Public Use
  Company Number: AR-AMGEN-ARGSP2015065789

PATIENT
  Age: 52 Year
  Sex: Male
  Weight: 60 kg

DRUGS (3)
  1. KYPROLIS [Suspect]
     Active Substance: CARFILZOMIB
     Indication: PLASMA CELL MYELOMA
     Dosage: 50 MG (27 MG/M2, DAY 1)
     Route: 042
     Dates: start: 20150614, end: 20150614
  2. DEXAMETHASONE. [Concomitant]
     Active Substance: DEXAMETHASONE
     Indication: PLASMA CELL MYELOMA
     Dosage: 2 MG, DAY 1
     Route: 042
     Dates: start: 20150614, end: 20150614
  3. KYPROLIS [Suspect]
     Active Substance: CARFILZOMIB
     Indication: TRANSPLANT

REACTIONS (3)
  - Malignant neoplasm progression [Unknown]
  - Cardiac failure [Recovering/Resolving]
  - Chronic kidney disease [Unknown]

NARRATIVE: CASE EVENT DATE: 20150614
